FAERS Safety Report 25400353 (Version 2)
Quarter: 2025Q3

REPORT INFORMATION
  Report Type: Spontaneous
  Country: EU (occurrence: EU)
  Receive Date: 20250605
  Receipt Date: 20250826
  Transmission Date: 20251020
  Serious: Yes (Death, Other)
  Sender: NOVITIUM PHARMA
  Company Number: EU-NOVITIUMPHARMA-2025FRNVP01294

PATIENT
  Age: 46 Year
  Sex: Female

DRUGS (1)
  1. DEXAMETHASONE [Suspect]
     Active Substance: DEXAMETHASONE
     Indication: Plasma cell leukaemia

REACTIONS (8)
  - Escherichia bacteraemia [Fatal]
  - Clostridium difficile colitis [Fatal]
  - Pneumocystis jirovecii pneumonia [Fatal]
  - Cytomegalovirus infection reactivation [Fatal]
  - Candida infection [Fatal]
  - Strongyloidiasis [Fatal]
  - Cerebral haemorrhage [Fatal]
  - Oedema [Fatal]
